FAERS Safety Report 4583947-5 (Version None)
Quarter: 2005Q1

REPORT INFORMATION
  Report Type: 
  Country: None (occurrence: None)
  Receive Date: 20050216
  Receipt Date: 20050124
  Transmission Date: 20050727
  Serious: No
  Sender: FDA-Public Use
  Company Number: US-GLAXOSMITHKLINE-A0541955A

PATIENT
  Age: 62 Year
  Sex: Male

DRUGS (11)
  1. AVODART [Suspect]
     Indication: BENIGN PROSTATIC HYPERPLASIA
     Dosage: .5MG PER DAY
     Route: 048
     Dates: start: 20040801
  2. NEXIUM [Concomitant]
  3. ZOCOR [Concomitant]
  4. CLARINEX [Concomitant]
  5. ASPIRIN [Concomitant]
  6. GLUCOSAMINE [Concomitant]
  7. NIACIN [Concomitant]
  8. MULTI-VITAMIN [Concomitant]
  9. FELDENE [Concomitant]
  10. ZINC [Concomitant]
  11. CALCIUM GLUCONATE [Concomitant]

REACTIONS (2)
  - DIARRHOEA [None]
  - NAUSEA [None]
